FAERS Safety Report 14103151 (Version 1)
Quarter: 2017Q4

REPORT INFORMATION
  Report Type: Spontaneous
  Country: US (occurrence: US)
  Receive Date: 20171018
  Receipt Date: 20171018
  Transmission Date: 20180321
  Serious: No
  Sender: FDA-Public Use
  Company Number: US-AMGEN-USASP2017067114

PATIENT
  Age: 86 Year
  Sex: Female

DRUGS (5)
  1. PROLIA [Suspect]
     Active Substance: DENOSUMAB
     Indication: OSTEOPOROSIS
     Dosage: UNK
     Route: 065
  2. FAMOTIDINE. [Concomitant]
     Active Substance: FAMOTIDINE
     Indication: GASTROOESOPHAGEAL REFLUX DISEASE
     Dosage: UNK
  3. METOPROLOL. [Suspect]
     Active Substance: METOPROLOL
     Indication: BLOOD PRESSURE ABNORMAL
     Dosage: UNK
     Route: 065
  4. VITAMINS [Concomitant]
     Active Substance: VITAMINS
     Dosage: UNK
  5. SYNTHROID [Concomitant]
     Active Substance: LEVOTHYROXINE SODIUM
     Dosage: UNK

REACTIONS (9)
  - General physical health deterioration [Unknown]
  - Musculoskeletal discomfort [Unknown]
  - Dizziness [Unknown]
  - Fatigue [Unknown]
  - Feeling abnormal [Unknown]
  - Asthenia [Unknown]
  - Musculoskeletal pain [Not Recovered/Not Resolved]
  - Skin discolouration [Unknown]
  - Hypersensitivity [Unknown]

NARRATIVE: CASE EVENT DATE: 201703
